FAERS Safety Report 20091589 (Version 1)
Quarter: 2021Q4

REPORT INFORMATION
  Report Type: Spontaneous
  Country: None (occurrence: US)
  Receive Date: 20211119
  Receipt Date: 20211119
  Transmission Date: 20220303
  Serious: Yes (Other)
  Sender: FDA-Public Use
  Company Number: US-Strukmyer Medical-2122071

PATIENT

DRUGS (1)
  1. TESTOSTERONE [Suspect]
     Active Substance: TESTOSTERONE
     Dates: start: 20210914

REACTIONS (1)
  - Incision site complication [Recovered/Resolved]

NARRATIVE: CASE EVENT DATE: 20210914
